FAERS Safety Report 9640042 (Version 1)
Quarter: 2013Q4

REPORT INFORMATION
  Report Type: Report from Study
  Country: US (occurrence: US)
  Receive Date: 20131023
  Receipt Date: 20131023
  Transmission Date: 20140711
  Serious: Yes (Death)
  Sender: FDA-Public Use
  Company Number: PHEH2013US021973

PATIENT
  Age: 68 Year
  Sex: Female

DRUGS (7)
  1. TOBI [Suspect]
     Indication: BRONCHIECTASIS
     Dosage: 5 ML, BID
     Dates: start: 20130410
  2. VORICONAZOLE [Concomitant]
     Dosage: 200 MG, UNK
  3. TRAZODONA [Concomitant]
     Dosage: 50 MG, UNK
  4. MAGNESIUM OXIDE [Concomitant]
     Dosage: 400 MG, UNK
  5. PANTOPRAZOLE [Concomitant]
     Dosage: 40 MG, UNK
  6. LEVOTHYROXINE [Concomitant]
     Dosage: 100 UG, UNK
  7. MIRTAZAPIN [Concomitant]
     Dosage: 15 MG, UNK

REACTIONS (1)
  - Death [Fatal]
